FAERS Safety Report 25077391 (Version 1)
Quarter: 2025Q1

REPORT INFORMATION
  Report Type: Spontaneous
  Country: GB (occurrence: GB)
  Receive Date: 20250314
  Receipt Date: 20250314
  Transmission Date: 20250408
  Serious: Yes (Disabling, Other)
  Sender: ABBVIE
  Company Number: None

PATIENT
  Sex: Male

DRUGS (6)
  1. CARIPRAZINE [Suspect]
     Active Substance: CARIPRAZINE
     Indication: Bipolar I disorder
     Dosage: INITIALLY 1.5MG INCREASED TO 3MG AFTER A CASE OF PARANOIA (BEFORE THE AMFETAMINE DEPENDENCE AND ABUS
     Route: 048
  2. CARIPRAZINE [Suspect]
     Active Substance: CARIPRAZINE
     Indication: Bipolar I disorder
     Dosage: INITIALLY 1.5MG INCREASED TO 3MG AFTER A CASE OF PARANOIA (BEFORE THE AMFETAMINE DEPENDENCE AND ABUS
     Route: 048
  3. BISOPROLOL [Concomitant]
     Active Substance: BISOPROLOL
     Indication: Ventricular extrasystoles
  4. LAMOTRIGINE [Concomitant]
     Active Substance: LAMOTRIGINE
     Indication: Bipolar I disorder
  5. FINASTERIDE [Concomitant]
     Active Substance: FINASTERIDE
     Indication: Androgenetic alopecia
  6. VORTIOXETINE [Concomitant]
     Active Substance: VORTIOXETINE
     Indication: Bipolar disorder

REACTIONS (5)
  - Drug dependence [Recovering/Resolving]
  - Drug abuse [Recovering/Resolving]
  - Cognitive disorder [Unknown]
  - Aphasia [Unknown]
  - Anhedonia [Recovering/Resolving]
